FAERS Safety Report 26121429 (Version 3)
Quarter: 2025Q4

REPORT INFORMATION
  Report Type: Spontaneous
  Country: US (occurrence: US)
  Receive Date: 20251204
  Receipt Date: 20251231
  Transmission Date: 20260118
  Serious: Yes (Other)
  Sender: DR REDDYS
  Company Number: US-DRL-USA-USA/2025/11/018004

PATIENT
  Age: 76 Year
  Sex: Female

DRUGS (2)
  1. LENALIDOMIDE [Suspect]
     Active Substance: LENALIDOMIDE
     Indication: Plasma cell myeloma
     Dosage: DOSE WAS DECREASED TO 5 MG
     Route: 065
     Dates: start: 20251028
  2. LENALIDOMIDE [Suspect]
     Active Substance: LENALIDOMIDE
     Route: 065
     Dates: end: 20251110

REACTIONS (11)
  - Hallucination [Unknown]
  - Nausea [Unknown]
  - Diarrhoea [Unknown]
  - Gait disturbance [Unknown]
  - Balance disorder [Unknown]
  - Flatulence [Unknown]
  - Dizziness [Unknown]
  - Disorientation [Unknown]
  - Myalgia [Unknown]
  - Arthralgia [Unknown]
  - Muscle spasms [Unknown]

NARRATIVE: CASE EVENT DATE: 20251101
